FAERS Safety Report 12253342 (Version 1)
Quarter: 2016Q2

REPORT INFORMATION
  Report Type: Spontaneous
  Country: US (occurrence: None)
  Receive Date: 20160408
  Receipt Date: 20160408
  Transmission Date: 20160815
  Serious: Yes (Death, Hospitalization)
  Sender: FDA-Public Use
  Company Number: None

PATIENT
  Age: 56 Year
  Sex: Female
  Weight: 46.4 kg

DRUGS (6)
  1. REGORAFENIB [Suspect]
     Active Substance: REGORAFENIB
     Indication: COLON CANCER METASTATIC
     Route: 048
     Dates: start: 20160223, end: 20160321
  2. CLOBETASOL [Suspect]
     Active Substance: CLOBETASOL
     Route: 061
  3. OXYCODOE-ACETAMOPHEN [Concomitant]
  4. FENTANYL. [Concomitant]
     Active Substance: FENTANYL
  5. SCOPOLAMINE TRAMSDERAL PATCH [Concomitant]
  6. XANA [Concomitant]

REACTIONS (2)
  - Pleural effusion [None]
  - Respiratory distress [None]

NARRATIVE: CASE EVENT DATE: 20160401
